FAERS Safety Report 14282180 (Version 1)
Quarter: 2017Q4

REPORT INFORMATION
  Report Type: Spontaneous
  Country: GB (occurrence: GB)
  Receive Date: 20171213
  Receipt Date: 20171213
  Transmission Date: 20180321
  Serious: Yes (Death, Disabling, Congenital Anomaly)
  Sender: FDA-Public Use
  Company Number: GB-ABBVIE-17P-167-2190080-00

PATIENT
  Sex: Female

DRUGS (1)
  1. SODIUM VALPROATE [Suspect]
     Active Substance: VALPROATE SODIUM
     Indication: PRODUCT USED FOR UNKNOWN INDICATION
     Route: 064

REACTIONS (9)
  - Intestinal obstruction [Unknown]
  - Low set ears [Unknown]
  - Hydrocephalus [Unknown]
  - Foetal exposure during pregnancy [Unknown]
  - Cleft palate [Unknown]
  - Dysmorphism [Unknown]
  - Spina bifida [Unknown]
  - Intraventricular haemorrhage [Fatal]
  - Brain injury [Unknown]

NARRATIVE: CASE EVENT DATE: 2008
